FAERS Safety Report 13817875 (Version 1)
Quarter: 2017Q3

REPORT INFORMATION
  Report Type: Spontaneous
  Country: US (occurrence: US)
  Receive Date: 20170731
  Receipt Date: 20170731
  Transmission Date: 20171127
  Serious: No
  Sender: FDA-Public Use
  Company Number: US-ROCHE-719118

PATIENT
  Age: 56 Year
  Sex: Female

DRUGS (2)
  1. SYNTHROID [Concomitant]
     Active Substance: LEVOTHYROXINE SODIUM
     Indication: HYPOTHYROIDISM
     Route: 065
  2. BONIVA [Suspect]
     Active Substance: IBANDRONATE SODIUM
     Indication: OSTEOPOROSIS
     Dosage: 1 VIAL
     Route: 042

REACTIONS (5)
  - Ear discomfort [Recovered/Resolved]
  - Hypoacusis [Recovering/Resolving]
  - Influenza like illness [Recovered/Resolved]
  - Temporomandibular joint syndrome [Unknown]
  - Pain in jaw [Unknown]

NARRATIVE: CASE EVENT DATE: 20100728
